FAERS Safety Report 7372818-7 (Version None)
Quarter: 2011Q1

REPORT INFORMATION
  Report Type: 
  Country: None (occurrence: None)
  Receive Date: 20110324
  Receipt Date: 20110322
  Transmission Date: 20110831
  Serious: Yes (Other)
  Sender: FDA-Public Use
  Company Number: AU-ROCHE-766986

PATIENT
  Sex: Female

DRUGS (1)
  1. ACTEMRA [Suspect]
     Route: 065

REACTIONS (6)
  - PHARYNGEAL OEDEMA [None]
  - ANXIETY [None]
  - HEADACHE [None]
  - MOUTH ULCERATION [None]
  - HEART RATE INCREASED [None]
  - DYSPNOEA [None]
